FAERS Safety Report 5638772-0 (Version None)
Quarter: 2008Q1

REPORT INFORMATION
  Report Type: 
  Country: None (occurrence: None)
  Receive Date: 20080226
  Receipt Date: 20080220
  Transmission Date: 20080703
  Serious: Yes (Hospitalization, Other)
  Sender: FDA-Public Use
  Company Number: US-WYE-H01732107

PATIENT
  Sex: Male
  Weight: 82.63 kg

DRUGS (2)
  1. CEFTRIAXONE [Suspect]
     Indication: ABDOMINAL ABSCESS
     Dosage: 2 GM DAILY
     Route: 042
     Dates: start: 20071111, end: 20071126
  2. METRONIDAZOLE HCL [Suspect]
     Indication: ABDOMINAL ABSCESS
     Dosage: 500 MG EVERY 6 HOURS
     Route: 042
     Dates: start: 20071111, end: 20071126

REACTIONS (1)
  - APPENDICEAL ABSCESS [None]
